FAERS Safety Report 8386508-5 (Version None)
Quarter: 2012Q2

REPORT INFORMATION
  Report Type: 
  Country: None (occurrence: None)
  Receive Date: 20120525
  Receipt Date: 20120418
  Transmission Date: 20120825
  Serious: No
  Sender: FDA-Public Use
  Company Number: US-PFIZER INC-2012123747

PATIENT
  Age: 79 Year
  Sex: Female

DRUGS (3)
  1. TRIAZOLAM [Suspect]
     Dosage: UNK
     Route: 065
  2. ZOLPIDEM TARTRATE [Suspect]
     Indication: INFECTION
  3. ZOLPIDEM TARTRATE [Suspect]
     Indication: NASOPHARYNGITIS
     Dosage: 5 MG, 1X/DAY
     Route: 048

REACTIONS (1)
  - SOMNOLENCE [None]
